FAERS Safety Report 21528360 (Version 1)
Quarter: 2022Q4

REPORT INFORMATION
  Report Type: Spontaneous
  Country: US (occurrence: US)
  Receive Date: 20221031
  Receipt Date: 20221031
  Transmission Date: 20230113
  Serious: No
  Sender: FDA-Public Use
  Company Number: US-GALDERMA-US2022010830

PATIENT

DRUGS (1)
  1. DIFFERIN GEL [Suspect]
     Active Substance: ADAPALENE
     Indication: Product used for unknown indication
     Dosage: 1 DOSAGE FORM, APPLIED ONLY ON FACE
     Route: 061

REACTIONS (4)
  - Pruritus [Unknown]
  - Erythema [Unknown]
  - Sensitive skin [Unknown]
  - Pain of skin [Unknown]
